FAERS Safety Report 6259333-9 (Version None)
Quarter: 2009Q3

REPORT INFORMATION
  Report Type: 
  Country: None (occurrence: None)
  Receive Date: 20090706
  Receipt Date: 20090626
  Transmission Date: 20100115
  Serious: Yes (Other)
  Sender: FDA-Public Use
  Company Number: 2009S1005138

PATIENT
  Age: 63 Year
  Sex: Female

DRUGS (5)
  1. PHOSPHOSODA FLAVOR NOT SPECIFIED [Suspect]
     Indication: COLONOSCOPY
     Dosage: 90 ML; TOTAL; PO
     Route: 048
     Dates: start: 20060822, end: 20060823
  2. GLYBURIDE [Concomitant]
  3. WARFARIN [Concomitant]
  4. SYNTHROID [Concomitant]
  5. CELBREX [Concomitant]

REACTIONS (6)
  - ANAEMIA [None]
  - CHEST DISCOMFORT [None]
  - FATIGUE [None]
  - INTERCAPILLARY GLOMERULOSCLEROSIS [None]
  - NAUSEA [None]
  - RENAL INJURY [None]
